FAERS Safety Report 5153926-8 (Version None)
Quarter: 2006Q4

REPORT INFORMATION
  Report Type: 
  Country: None (occurrence: None)
  Receive Date: 20061120
  Receipt Date: 20060816
  Transmission Date: 20070319
  Serious: Yes (Hospitalization)
  Sender: FDA-Public Use
  Company Number: US-AMGEN-US190301

PATIENT
  Sex: Female

DRUGS (2)
  1. ENBREL [Suspect]
     Indication: RHEUMATOID ARTHRITIS
     Route: 058
     Dates: start: 20020911
  2. METHOTREXATE [Concomitant]

REACTIONS (8)
  - ACQUIRED OESOPHAGEAL WEB [None]
  - CHOLELITHIASIS [None]
  - FELTY'S SYNDROME [None]
  - GASTRITIS [None]
  - GILBERT'S SYNDROME [None]
  - HIATUS HERNIA [None]
  - LIVER DISORDER [None]
  - VARICES OESOPHAGEAL [None]
